FAERS Safety Report 15135305 (Version 3)
Quarter: 2018Q3

REPORT INFORMATION
  Report Type: Spontaneous
  Country: BR (occurrence: BR)
  Receive Date: 20180712
  Receipt Date: 20180803
  Transmission Date: 20181010
  Serious: Yes (Other)
  Sender: FDA-Public Use
  Company Number: BR-PFIZER INC-2018277693

PATIENT
  Age: 56 Year
  Sex: Female

DRUGS (4)
  1. GEODON [Suspect]
     Active Substance: ZIPRASIDONE HYDROCHLORIDE\ZIPRASIDONE MESYLATE
     Dosage: 2 CAPSULES, DAILY
  2. FLUOXETINE [Concomitant]
     Active Substance: FLUOXETINE HYDROCHLORIDE
     Dosage: UNK
     Dates: start: 2005
  3. GEODON [Suspect]
     Active Substance: ZIPRASIDONE HYDROCHLORIDE\ZIPRASIDONE MESYLATE
     Indication: SCHIZOPHRENIA
     Dosage: 80 MG, UNK
     Dates: start: 2005
  4. CLONAZEPAM. [Concomitant]
     Active Substance: CLONAZEPAM
     Dosage: UNK
     Dates: start: 2005

REACTIONS (7)
  - Feeling abnormal [Not Recovered/Not Resolved]
  - Sedation [Recovered/Resolved]
  - Drug dependence [Not Recovered/Not Resolved]
  - Insomnia [Recovered/Resolved]
  - Distractibility [Recovered/Resolved]
  - Sexual dysfunction [Recovered/Resolved]
  - Intentional product misuse [Recovered/Resolved]

NARRATIVE: CASE EVENT DATE: 2005
